FAERS Safety Report 5096188-2 (Version None)
Quarter: 2006Q3

REPORT INFORMATION
  Report Type: 
  Country: None (occurrence: None)
  Receive Date: 20060905
  Receipt Date: 20060810
  Transmission Date: 20061208
  Serious: Yes (Other)
  Sender: FDA-Public Use
  Company Number: AU-ROCHE-459042

PATIENT
  Sex: Female
  Weight: 65 kg

DRUGS (4)
  1. DIAZEPAM [Suspect]
     Indication: DRUG USE FOR UNKNOWN INDICATION
     Dosage: TRADE NAME REPORTED AS: ANTENEX. DOSAGE REGIMEN REPORTED AS: 2N. DRUG STARTED MORE THAN TWO YEARS A+
     Route: 048
     Dates: start: 20040615, end: 20060811
  2. RIVOTRIL [Concomitant]
     Route: 048
     Dates: start: 20050201, end: 20060315
  3. IMOVANE [Concomitant]
     Dosage: TOOK ONE DOSE ONLY AT NIGHT.
     Route: 048
     Dates: start: 20060711, end: 20060711
  4. ENDEP [Concomitant]
     Dosage: ONE TAKEN AT NIGHT. STARTED MORE THAN TWO YEARS AGO.
     Route: 048
     Dates: start: 20040615

REACTIONS (1)
  - PLATELET COUNT DECREASED [None]
